FAERS Safety Report 4750121-9 (Version None)
Quarter: 2005Q3

REPORT INFORMATION
  Report Type: 
  Country: None (occurrence: None)
  Receive Date: 20050819
  Receipt Date: 20050819
  Transmission Date: 20060218
  Serious: Yes (Other)
  Sender: FDA-Public Use
  Company Number: None

PATIENT
  Sex: Male
  Weight: 55 kg

DRUGS (2)
  1. FLUOROURACIL  5-FU [Suspect]
     Indication: ADENOCARCINOMA
     Dosage: SEE IMAGE
     Dates: start: 20050802, end: 20050816
  2. FLUOROURACIL  5-FU [Suspect]
     Indication: GASTROOESOPHAGEAL CANCER
     Dosage: SEE IMAGE
     Dates: start: 20050802, end: 20050816

REACTIONS (3)
  - DIARRHOEA [None]
  - NEUTROPHIL COUNT DECREASED [None]
  - WEIGHT DECREASED [None]
